FAERS Safety Report 4940639-8 (Version None)
Quarter: 2006Q1

REPORT INFORMATION
  Report Type: 
  Country: None (occurrence: None)
  Receive Date: 20060206
  Receipt Date: 20050620
  Transmission Date: 20060701
  Serious: Yes (Hospitalization)
  Sender: FDA-Public Use
  Company Number: MEDI-0003521

PATIENT
  Age: 58 Year
  Sex: Female

DRUGS (4)
  1. ETHYOL [Suspect]
     Indication: CHEMOTHERAPY
     Dosage: 1 IN 1 D
     Dates: start: 20050609, end: 20050615
  2. ETHYOL [Suspect]
     Indication: RADIOTHERAPY
     Dosage: 1 IN 1 D
     Dates: start: 20050609, end: 20050615
  3. CARBOPLATIN [Concomitant]
  4. ETOPOSIDE [Concomitant]

REACTIONS (6)
  - ANAEMIA [None]
  - COUGH [None]
  - HAEMOPTYSIS [None]
  - NAUSEA [None]
  - NEUTROPENIA [None]
  - VOMITING [None]
